FAERS Safety Report 6937134-3 (Version None)
Quarter: 2010Q3

REPORT INFORMATION
  Report Type: 
  Country: None (occurrence: None)
  Receive Date: 20100823
  Receipt Date: 20100602
  Transmission Date: 20110219
  Serious: No
  Sender: FDA-Public Use
  Company Number: US-MYLANLABS-2010S1006954

PATIENT
  Sex: Female

DRUGS (2)
  1. PENTOXIFYLLINE ER TABLETS [Suspect]
     Indication: EYE DISORDER
     Route: 048
     Dates: start: 20100101, end: 20100228
  2. PENTOXIFYLLINE ER TABLETS [Suspect]
     Route: 048
     Dates: start: 20100415, end: 20100401

REACTIONS (4)
  - ABDOMINAL DISCOMFORT [None]
  - ABDOMINAL PAIN UPPER [None]
  - GASTROOESOPHAGEAL REFLUX DISEASE [None]
  - REACTION TO DRUG EXCIPIENTS [None]
